FAERS Safety Report 4941813-7 (Version None)
Quarter: 2006Q1

REPORT INFORMATION
  Report Type: 
  Country: None (occurrence: None)
  Receive Date: 20060308
  Receipt Date: 20060223
  Transmission Date: 20060701
  Serious: Yes (Death, Hospitalization, Other)
  Sender: FDA-Public Use
  Company Number: HQWYE968015DEC04

PATIENT
  Age: 71 Year
  Sex: Female
  Weight: 59.2 kg

DRUGS (3)
  1. PREMPRO [Suspect]
  2. PREMARIN [Suspect]
  3. PROVERA [Suspect]

REACTIONS (6)
  - ABDOMINAL DISTENSION [None]
  - ABDOMINAL PAIN [None]
  - CONSTIPATION [None]
  - MYOCARDIAL INFARCTION [None]
  - OVARIAN CANCER [None]
  - PROCEDURAL COMPLICATION [None]
